FAERS Safety Report 5322324-6 (Version None)
Quarter: 2007Q2

REPORT INFORMATION
  Report Type: 
  Country: None (occurrence: None)
  Receive Date: 20070511
  Receipt Date: 20070430
  Transmission Date: 20071010
  Serious: Yes (Hospitalization)
  Sender: FDA-Public Use
  Company Number: US-ELI_LILLY_AND_COMPANY-US200701004379

PATIENT
  Sex: Female

DRUGS (10)
  1. CYMBALTA [Suspect]
     Indication: POST HERPETIC NEURALGIA
     Dosage: 60 MG, UNK
     Route: 048
  2. CYMBALTA [Suspect]
     Dosage: 30 MG, UNK
     Route: 048
  3. DIGOXIN [Concomitant]
  4. NORVASC [Concomitant]
     Dosage: 10 UNK, DAILY (1/D)
  5. AVANDIA [Concomitant]
     Dosage: UNK D/F, UNK
  6. TOPROL-XL [Concomitant]
     Dosage: 200 UNK, EACH EVENING
  7. FOSAMAX [Concomitant]
     Dosage: 70 UNK, WEEKLY (1/W)
  8. CETIRIZINE HCL [Concomitant]
     Dosage: 10 UNK, DAILY (1/D)
  9. OXYCONTIN [Concomitant]
     Dosage: 10 UNK, EACH EVENING
  10. NITRODUR II [Concomitant]
     Dosage: 0.4 UNK, UNK
     Route: 062

REACTIONS (1)
  - THERAPEUTIC AGENT TOXICITY [None]
